FAERS Safety Report 8611536 (Version 3)
Quarter: 2013Q1

REPORT INFORMATION
  Report Type: Spontaneous
  Country: US (occurrence: US)
  Receive Date: 20120613
  Receipt Date: 20130223
  Transmission Date: 20140127
  Serious: Yes (Other)
  Sender: FDA-Public Use
  Company Number: US-US-EMD SERONO, INC.-7138139

PATIENT
  Age: 55 None
  Sex: Female

DRUGS (6)
  1. REBIF [Suspect]
     Indication: MULTIPLE SCLEROSIS
     Route: 058
     Dates: start: 20041115
  2. OXYCODONE [Concomitant]
     Indication: PAIN
  3. OXYCODONE [Concomitant]
     Indication: CHEST DISCOMFORT
  4. OXYGEN [Concomitant]
     Indication: ASTHMA
  5. TYLENOL [Concomitant]
     Indication: PREMEDICATION
  6. IBUPROFEN [Concomitant]
     Indication: PREMEDICATION

REACTIONS (7)
  - Non-alcoholic steatohepatitis [Not Recovered/Not Resolved]
  - Gastrooesophageal reflux disease [Not Recovered/Not Resolved]
  - Anxiety [Not Recovered/Not Resolved]
  - Post procedural haemorrhage [Unknown]
  - Spinal osteoarthritis [Not Recovered/Not Resolved]
  - Hyperhidrosis [Not Recovered/Not Resolved]
  - Depression [Not Recovered/Not Resolved]
